FAERS Safety Report 16056552 (Version 1)
Quarter: 2019Q2

REPORT INFORMATION
  Report Type: Spontaneous
  Country: US (occurrence: US)
  Receive Date: 20190309
  Receipt Date: 20190309
  Transmission Date: 20190711
  Serious: Yes (Other)
  Sender: FDA-Public Use
  Company Number: None

PATIENT
  Age: 42 Year
  Sex: Male
  Weight: 123.75 kg

DRUGS (1)
  1. AMLODIPINE BESYLATE\HYDROCHLOROTHIAZIDE\VALSARTAN [Suspect]
     Active Substance: AMLODIPINE BESYLATE\HYDROCHLOROTHIAZIDE\VALSARTAN
     Indication: HYPERTENSION
     Route: 048
     Dates: start: 20130204

REACTIONS (6)
  - Chest pain [None]
  - Pain in extremity [None]
  - Cough [None]
  - Headache [None]
  - Dysphagia [None]
  - Hypoaesthesia [None]

NARRATIVE: CASE EVENT DATE: 20190304
